FAERS Safety Report 7821557 (Version 3)
Quarter: 2012Q4

REPORT INFORMATION
  Report Type: 
  Country: JP (occurrence: JP)
  Receive Date: 20110222
  Receipt Date: 20120910
  Transmission Date: 20130627
  Serious: Yes (Hospitalization)
  Sender: FDA-Public Use
  Company Number: JP-ROCHE-759970

PATIENT
  Age: 77 None
  Sex: Female
  Weight: 42 kg

DRUGS (3)
  1. AVASTIN [Suspect]
     Indication: RECTAL CANCER RECURRENT
     Route: 041
     Dates: start: 20101104, end: 20110107
  2. XELODA [Suspect]
     Indication: RECTAL CANCER RECURRENT
     Route: 048
     Dates: start: 20101104, end: 20110107
  3. ELPLAT [Concomitant]
     Indication: RECTAL CANCER RECURRENT
     Dosage: DOSE: 125.
     Route: 041
     Dates: start: 20101104, end: 20110107

REACTIONS (4)
  - Altered state of consciousness [Recovered/Resolved]
  - Dyslalia [Recovered/Resolved]
  - Akinesia [Recovered/Resolved]
  - Dysphagia [Recovered/Resolved]
